FAERS Safety Report 7677661-7 (Version None)
Quarter: 2011Q3

REPORT INFORMATION
  Report Type: 
  Country: None (occurrence: None)
  Receive Date: 20110811
  Receipt Date: 20110802
  Transmission Date: 20111222
  Serious: Yes (Hospitalization, Other)
  Sender: FDA-Public Use
  Company Number: PHHY2011US22925

PATIENT
  Sex: Female
  Weight: 66.68 kg

DRUGS (2)
  1. EXJADE [Suspect]
     Dosage: 1500 MG, DAILY
     Route: 048
     Dates: start: 20110501
  2. EXJADE [Suspect]
     Indication: APLASTIC ANAEMIA
     Dosage: 1500 MG
     Route: 048
     Dates: start: 20060901

REACTIONS (5)
  - CREATININE RENAL CLEARANCE INCREASED [None]
  - DEVICE RELATED INFECTION [None]
  - RENAL FAILURE [None]
  - BLOOD CREATININE INCREASED [None]
  - PLATELET COUNT DECREASED [None]
